FAERS Safety Report 6537166-3 (Version None)
Quarter: 2010Q1

REPORT INFORMATION
  Report Type: 
  Country: None (occurrence: None)
  Receive Date: 20100107
  Receipt Date: 20091223
  Transmission Date: 20100710
  Serious: Yes (Hospitalization)
  Sender: FDA-Public Use
  Company Number: 1000011025

PATIENT
  Age: 67 Year
  Sex: Female

DRUGS (8)
  1. CITALOPRAM (CITALOPRAM HYDROBROMDIE) [Suspect]
     Indication: MAJOR DEPRESSION
     Dosage: ORAL
     Route: 048
     Dates: end: 20090422
  2. DEPAKOTE [Suspect]
     Indication: MAJOR DEPRESSION
     Dosage: 500 MG (250 MG, 2 IN 1 D), ORAL
     Route: 048
     Dates: start: 20090422, end: 20090426
  3. ELAVIL [Concomitant]
  4. VALIUM [Concomitant]
  5. FORLAX [Concomitant]
  6. LIPANTHYL (TABLETS) [Concomitant]
  7. KARDEGIC (POWDER) [Concomitant]
  8. INIPOMP (TABLETS) [Concomitant]

REACTIONS (5)
  - AGITATION [None]
  - CONFUSIONAL STATE [None]
  - DYSARTHRIA [None]
  - LOGORRHOEA [None]
  - PYREXIA [None]
